FAERS Safety Report 4848272-3 (Version None)
Quarter: 2005Q4

REPORT INFORMATION
  Report Type: 
  Country: None (occurrence: None)
  Receive Date: 20051208
  Receipt Date: 20051128
  Transmission Date: 20060501
  Serious: Yes (Other)
  Sender: FDA-Public Use
  Company Number: 2005AC01888

PATIENT
  Age: 62 Year
  Sex: Male
  Weight: 84 kg

DRUGS (18)
  1. LIDOCAINE [Suspect]
     Indication: ANAESTHESIA
     Route: 042
  2. PROPOFOL [Suspect]
     Indication: ANAESTHESIA
     Route: 042
  3. PROPOFOL [Suspect]
     Route: 042
  4. FENTANYL [Suspect]
     Indication: ANAESTHESIA
     Route: 042
  5. FENTANYL [Suspect]
     Route: 042
  6. ROCURONIUM [Suspect]
     Indication: ANAESTHESIA
     Route: 042
  7. ISOFLURANE [Suspect]
     Indication: ANAESTHESIA
  8. ISOSORBIDE MONONITRATE [Concomitant]
  9. AMLODIPINE BESYLATE [Concomitant]
  10. ENALAPRIL [Concomitant]
  11. ATORVASTATIN CALCIUM [Concomitant]
  12. GEMFIBROZIL [Concomitant]
  13. ASPIRIN [Concomitant]
  14. POTASSIUM [Concomitant]
  15. NITROGLYCERIN [Concomitant]
  16. FLUOXETINE [Concomitant]
  17. LABETOLOL [Concomitant]
  18. ESMOLOL HCL [Concomitant]
     Indication: ANAESTHESIA
     Route: 042

REACTIONS (3)
  - BLOOD CREATININE INCREASED [None]
  - HYPERTENSIVE CRISIS [None]
  - TROPONIN INCREASED [None]
